FAERS Safety Report 8425523-X (Version None)
Quarter: 2012Q2

REPORT INFORMATION
  Report Type: 
  Country: None (occurrence: None)
  Receive Date: 20120605
  Receipt Date: 20120605
  Transmission Date: 20120825
  Serious: No
  Sender: FDA-Public Use
  Company Number: None

PATIENT
  Sex: Female
  Weight: 70.7611 kg

DRUGS (3)
  1. EMEND [Suspect]
     Indication: PROPHYLAXIS OF NAUSEA AND VOMITING
     Dosage: 150 MG X 1 IVPB
     Route: 042
     Dates: start: 20120404
  2. DECADRON [Concomitant]
  3. ALOXI [Concomitant]

REACTIONS (3)
  - ERYTHEMA [None]
  - DYSPNOEA [None]
  - INFUSION RELATED REACTION [None]
